FAERS Safety Report 5430536-6 (Version None)
Quarter: 2007Q3

REPORT INFORMATION
  Report Type: 
  Country: None (occurrence: None)
  Receive Date: 20070830
  Receipt Date: 20070823
  Transmission Date: 20080115
  Serious: Yes (Hospitalization, Other)
  Sender: FDA-Public Use
  Company Number: PHBS2007JP09841

PATIENT
  Sex: Female

DRUGS (8)
  1. COMTAN [Suspect]
     Indication: PARKINSON'S DISEASE
     Dosage: 100 MG, QID
     Route: 048
     Dates: start: 20070501, end: 20070501
  2. COMTAN [Suspect]
     Dosage: 100 MG, QID
     Route: 048
     Dates: start: 20070419
  3. DEPAS [Concomitant]
     Dosage: 1 MG/D
     Route: 048
  4. FP [Concomitant]
     Indication: PARKINSON'S DISEASE
     Dosage: 2.5 MG/D
     Route: 048
  5. NEO DOPASTON [Concomitant]
     Dosage: 150 MG/DAY
     Route: 048
  6. CABERGOLINE [Concomitant]
     Dosage: 1 MG/DAY
     Route: 048
  7. RETICOLAN [Concomitant]
     Dosage: 1500 UG/DAY
     Route: 048
  8. SELBEX [Concomitant]
     Dosage: 1.5 G/DAY
     Route: 048

REACTIONS (9)
  - COUGH [None]
  - EYE PAIN [None]
  - INTERSTITIAL LUNG DISEASE [None]
  - PNEUMONIA [None]
  - PRODUCTIVE COUGH [None]
  - RETINAL HAEMORRHAGE [None]
  - RHINALGIA [None]
  - RHINORRHOEA [None]
  - VITREOUS FLOATERS [None]
